FAERS Safety Report 23804173 (Version 3)
Quarter: 2024Q2

REPORT INFORMATION
  Report Type: Spontaneous
  Country: US (occurrence: US)
  Receive Date: 20240501
  Receipt Date: 20240614
  Transmission Date: 20240717
  Serious: No
  Sender: FDA-Public Use
  Company Number: US-Calliditas-2024CAL00670

PATIENT
  Age: 33 Year
  Sex: Female

DRUGS (4)
  1. TARPEYO [Suspect]
     Active Substance: BUDESONIDE
     Indication: IgA nephropathy
     Route: 048
     Dates: start: 20240325
  2. LOSARTAN [Concomitant]
     Active Substance: LOSARTAN
  3. AMLODIPINE [Concomitant]
     Active Substance: AMLODIPINE BESYLATE
  4. PRENATAL VITAMINS [ASCORBIC ACID;BIOTIN;MINERALS NOS;NICOTINIC ACID... [Concomitant]

REACTIONS (14)
  - Peripheral swelling [Not Recovered/Not Resolved]
  - Joint swelling [Not Recovered/Not Resolved]
  - Rash [Unknown]
  - Intermenstrual bleeding [Unknown]
  - Muscle spasms [Unknown]
  - Increased tendency to bruise [Unknown]
  - Hyperaesthesia teeth [Unknown]
  - Abdominal pain upper [Unknown]
  - Diarrhoea [Unknown]
  - Weight increased [Unknown]
  - Waist circumference increased [Unknown]
  - White blood cell count increased [Unknown]
  - Glomerular filtration rate decreased [Unknown]
  - Proteinuria [Unknown]

NARRATIVE: CASE EVENT DATE: 20240421
